FAERS Safety Report 7542405-6 (Version None)
Quarter: 2011Q2

REPORT INFORMATION
  Report Type: 
  Country: None (occurrence: None)
  Receive Date: 20110603
  Receipt Date: 20110531
  Transmission Date: 20111010
  Serious: Yes (Life-Threatening, Hospitalization)
  Sender: FDA-Public Use
  Company Number: 2011SP025193

PATIENT
  Age: 80 Year
  Sex: Female

DRUGS (4)
  1. PIVALIRUDIN (BIVALIRUDIN) [Concomitant]
  2. ASPIRIN [Concomitant]
  3. PLAVIX [Concomitant]
  4. INTEGRILIN [Suspect]
     Indication: CARDIAC OPERATION
     Dates: start: 20110504

REACTIONS (3)
  - PLATELET COUNT DECREASED [None]
  - RENAL FAILURE [None]
  - DIALYSIS [None]
